FAERS Safety Report 5896092-3 (Version None)
Quarter: 2008Q3

REPORT INFORMATION
  Report Type: 
  Country: None (occurrence: None)
  Receive Date: 20080924
  Receipt Date: 20080909
  Transmission Date: 20090109
  Serious: Yes (Hospitalization)
  Sender: FDA-Public Use
  Company Number: GB-GENENTECH-232022

PATIENT
  Sex: Male
  Weight: 89.886 kg

DRUGS (6)
  1. AVASTIN [Suspect]
     Indication: COLON CANCER
     Dosage: 445 MG, Q2W
     Route: 042
     Dates: start: 20051025
  2. AVASTIN [Suspect]
     Dosage: 600 MG, Q3W
     Route: 042
     Dates: start: 20060509, end: 20060919
  3. OXALIPLATIN [Suspect]
     Indication: COLON CANCER
     Dosage: 170 MG, Q2W
     Route: 042
     Dates: start: 20051025, end: 20060404
  4. CALCIUM FOLINATE [Suspect]
     Indication: COLON CANCER
     Dosage: 800 MG, Q2W
     Route: 042
     Dates: start: 20051025, end: 20060421
  5. FLUOROURACIL [Suspect]
     Indication: COLON CANCER
     Dosage: 400 MG, UNK
     Route: 040
     Dates: start: 20051025, end: 20060421
  6. FLUOROURACIL [Suspect]
     Dosage: UNK, Q2W
     Route: 042
     Dates: start: 20051025, end: 20060421

REACTIONS (2)
  - CELLULITIS [None]
  - PERINEAL ABSCESS [None]
